FAERS Safety Report 9680531 (Version 1)
Quarter: 2013Q4

REPORT INFORMATION
  Report Type: Spontaneous
  Country: US (occurrence: US)
  Receive Date: 20131111
  Receipt Date: 20131111
  Transmission Date: 20140711
  Serious: No
  Sender: FDA-Public Use
  Company Number: US-PFIZER INC-2013320220

PATIENT
  Age: 75 Year
  Sex: Female
  Weight: 58.96 kg

DRUGS (1)
  1. GABAPENTIN [Suspect]
     Indication: POST HERPETIC NEURALGIA
     Dosage: UNK, 2X/DAY
     Route: 048
     Dates: start: 20131105

REACTIONS (2)
  - Drug ineffective [Unknown]
  - Pain [Unknown]
